FAERS Safety Report 8838671 (Version 1)
Quarter: 2012Q4

REPORT INFORMATION
  Report Type: 
  Country: AT (occurrence: AT)
  Receive Date: 20121012
  Receipt Date: 20121012
  Transmission Date: 20130627
  Serious: Yes (Life-Threatening, Other)
  Sender: FDA-Public Use
  Company Number: AT-B.I. PHARMACEUTICALS,INC./RIDGEFIELD-2012-AP-00849AP

PATIENT
  Age: 88 Year
  Sex: Female

DRUGS (10)
  1. PRADAXA [Suspect]
     Indication: ATRIAL FIBRILLATION
     Dosage: 300 mg
     Route: 048
     Dates: start: 201201, end: 20120921
  2. CONCOR 2.5MG [Concomitant]
     Indication: HYPERTENSION
     Dosage: 2.5 mg
     Route: 048
     Dates: start: 201201
  3. CONCOR 2.5MG [Concomitant]
     Indication: ATRIAL FIBRILLATION
  4. DOMINAL 80MG [Concomitant]
     Indication: SLEEP DISORDER
     Dosage: 80 mg
     Route: 048
  5. FUROSEMID 40MG [Concomitant]
     Indication: CARDIAC FAILURE
     Dosage: 40 mg
     Route: 048
     Dates: start: 201201
  6. SIMVASTATIN [Concomitant]
     Indication: HYPERCHOLESTEROLAEMIA
     Dosage: 40 mg
     Route: 048
     Dates: start: 201201
  7. OMEPRAZOL 40MG [Concomitant]
     Dosage: 40 mg
  8. SPIRONO 50MG [Concomitant]
     Dosage: 1/2/0/0, every second day
  9. BIOFLORIN [Concomitant]
     Dosage: 1/1/1
  10. KLAZID [Concomitant]
     Dosage: 500 mg
     Dates: start: 20120917

REACTIONS (7)
  - Gastrointestinal infection [Unknown]
  - Dehydration [Unknown]
  - Prerenal failure [Unknown]
  - Anaemia [Unknown]
  - Disseminated intravascular coagulation [Unknown]
  - Gastrointestinal haemorrhage [Recovered/Resolved]
  - Thrombocytopenia [Unknown]
